FAERS Safety Report 5044136-3 (Version None)
Quarter: 2006Q3

REPORT INFORMATION
  Report Type: 
  Country: None (occurrence: None)
  Receive Date: 20060706
  Receipt Date: 20060627
  Transmission Date: 20061208
  Serious: Yes (Death)
  Sender: FDA-Public Use
  Company Number: US-JNJFOC-20060606769

PATIENT
  Sex: Female
  Weight: 57.15 kg

DRUGS (2)
  1. FENTANYL TRANSDERMAL SYSTEM [Suspect]
     Indication: PAIN
     Route: 062
  2. OXYCODONE HCL [Concomitant]
     Indication: PAIN
     Dosage: AS NEEDED

REACTIONS (1)
  - LUNG CANCER METASTATIC [None]
